FAERS Safety Report 5131704-3 (Version None)
Quarter: 2006Q4

REPORT INFORMATION
  Report Type: 
  Country: None (occurrence: None)
  Receive Date: 20061020
  Receipt Date: 20061016
  Transmission Date: 20070319
  Serious: Yes (Death)
  Sender: FDA-Public Use
  Company Number: DE-BOEHRINGER INGELHEIM PHARMACEUTICALS, INC.-2006-DE-05434DE

PATIENT
  Age: 72 Year
  Sex: Male
  Weight: 120 kg

DRUGS (7)
  1. SPIRIVA [Suspect]
     Indication: CHRONIC OBSTRUCTIVE PULMONARY DISEASE
     Route: 055
     Dates: start: 20060418, end: 20060608
  2. COAPROVEL [Concomitant]
     Indication: HYPERTENSION
     Dosage: STRENGTH: 150/12,5 MG
  3. TORSEMIDE [Concomitant]
     Indication: CARDIAC FAILURE
  4. XIPAMID [Concomitant]
     Indication: CARDIAC FAILURE
  5. FOSAMAX [Concomitant]
     Indication: OSTEOPOROSIS
  6. METFORMIN HCL [Concomitant]
     Indication: DIABETES MELLITUS
  7. CALCIUM FORTE [Concomitant]
     Indication: OSTEOPOROSIS

REACTIONS (1)
  - PNEUMONIA [None]
